FAERS Safety Report 4312523-4 (Version None)
Quarter: 2004Q1

REPORT INFORMATION
  Report Type: 
  Country: None (occurrence: None)
  Receive Date: 20040302
  Receipt Date: 20040105
  Transmission Date: 20041129
  Serious: No
  Sender: FDA-Public Use
  Company Number: 700809

PATIENT
  Age: 48 Year
  Sex: Female

DRUGS (7)
  1. AMEVIVE [Suspect]
     Indication: PSORIASIS
     Dosage: 15 MG QW IM
     Route: 030
     Dates: start: 20030516, end: 20030101
  2. PRILOSEC [Concomitant]
  3. DOVONEX [Concomitant]
  4. ULTRAVATE [Concomitant]
  5. WELLBUTRIN SR [Concomitant]
  6. ACIPHEX [Concomitant]
  7. DYAZIDE [Concomitant]

REACTIONS (6)
  - ANXIETY [None]
  - BONE PAIN [None]
  - MENOPAUSAL SYMPTOMS [None]
  - PALPITATIONS [None]
  - SLEEP APNOEA SYNDROME [None]
  - VENTRICULAR EXTRASYSTOLES [None]
